FAERS Safety Report 22746869 (Version 8)
Quarter: 2023Q4

REPORT INFORMATION
  Report Type: Report from Study
  Country: US (occurrence: US)
  Receive Date: 20230725
  Receipt Date: 20231220
  Transmission Date: 20240110
  Serious: No
  Sender: FDA-Public Use
  Company Number: US-002147023-NVSC2023US163224

PATIENT
  Age: 56 Year
  Sex: Female

DRUGS (1)
  1. KESIMPTA [Suspect]
     Active Substance: OFATUMUMAB
     Indication: Product used for unknown indication
     Dosage: UNK
     Route: 065
     Dates: start: 20230630

REACTIONS (4)
  - Gait disturbance [Unknown]
  - Muscular weakness [Recovering/Resolving]
  - Injection site bruising [Unknown]
  - Fatigue [Unknown]

NARRATIVE: CASE EVENT DATE: 20230630
